FAERS Safety Report 6541565-3 (Version None)
Quarter: 2010Q1

REPORT INFORMATION
  Report Type: 
  Country: None (occurrence: None)
  Receive Date: 20100119
  Receipt Date: 20100113
  Transmission Date: 20100710
  Serious: Yes (Other)
  Sender: FDA-Public Use
  Company Number: JP-ROCHE-675551

PATIENT
  Sex: Female
  Weight: 38 kg

DRUGS (2)
  1. TAMIFLU [Suspect]
     Indication: INFLUENZA
     Route: 048
     Dates: start: 20091209, end: 20091209
  2. LOXONIN [Concomitant]
     Route: 048
     Dates: start: 20091209, end: 20091209

REACTIONS (2)
  - CHEST DISCOMFORT [None]
  - NAUSEA [None]
